FAERS Safety Report 12618171 (Version 1)
Quarter: 2016Q3

REPORT INFORMATION
  Report Type: Spontaneous
  Country: US (occurrence: None)
  Receive Date: 20160802
  Receipt Date: 20160802
  Transmission Date: 20161109
  Serious: No
  Sender: FDA-Public Use
  Company Number: None

PATIENT
  Age: 36 Year
  Sex: Female
  Weight: 113.6 kg

DRUGS (1)
  1. ENBREL [Suspect]
     Active Substance: ETANERCEPT
     Indication: PSORIATIC ARTHROPATHY
     Route: 058
     Dates: start: 20160719

REACTIONS (5)
  - Injection site warmth [None]
  - Injection site erythema [None]
  - Injection site swelling [None]
  - Pain [None]
  - Irritability [None]

NARRATIVE: CASE EVENT DATE: 20160801
